FAERS Safety Report 14267144 (Version 1)
Quarter: 2017Q4

REPORT INFORMATION
  Report Type: Spontaneous
  Country: US (occurrence: US)
  Receive Date: 20171208
  Receipt Date: 20171208
  Transmission Date: 20180321
  Serious: No
  Sender: FDA-Public Use
  Company Number: None

PATIENT
  Age: 32 Year
  Sex: Female
  Weight: 67.5 kg

DRUGS (4)
  1. PROZAC [Concomitant]
     Active Substance: FLUOXETINE HYDROCHLORIDE
  2. TYLENOL [Concomitant]
     Active Substance: ACETAMINOPHEN
  3. PREDNISONE 20MG [Suspect]
     Active Substance: PREDNISONE
     Indication: UPPER RESPIRATORY TRACT INFECTION
     Dosage: ?          QUANTITY:2 TABLET(S);?
     Route: 048
  4. ATIVAN [Concomitant]
     Active Substance: LORAZEPAM

REACTIONS (6)
  - Nausea [None]
  - Sleep disorder [None]
  - Pain in extremity [None]
  - Headache [None]
  - Dizziness [None]
  - Swollen tongue [None]

NARRATIVE: CASE EVENT DATE: 20171207
